FAERS Safety Report 23068002 (Version 1)
Quarter: 2023Q4

REPORT INFORMATION
  Report Type: Spontaneous
  Country: JP (occurrence: JP)
  Receive Date: 20231016
  Receipt Date: 20231016
  Transmission Date: 20240110
  Serious: No
  Sender: FDA-Public Use
  Company Number: JP-ALKEM LABORATORIES LIMITED-JP-ALKEM-2023-02659

PATIENT
  Age: 64 Year
  Sex: Female

DRUGS (1)
  1. DULOXETINE [Suspect]
     Active Substance: DULOXETINE
     Indication: Burning mouth syndrome
     Dosage: 40 MG/DAY
     Route: 065

REACTIONS (1)
  - Somnolence [Unknown]
